FAERS Safety Report 14110977 (Version 1)
Quarter: 2017Q4

REPORT INFORMATION
  Report Type: Spontaneous
  Country: GB (occurrence: GB)
  Receive Date: 20171020
  Receipt Date: 20171020
  Transmission Date: 20180321
  Serious: Yes (Other)
  Sender: FDA-Public Use
  Company Number: GB-PFIZER INC-2017451476

PATIENT
  Age: 32 Year
  Sex: Female
  Weight: 71 kg

DRUGS (3)
  1. LYMECYCLINE [Concomitant]
     Active Substance: LYMECYCLINE
     Dosage: UNK
  2. CLINDAMYCIN HCL [Suspect]
     Active Substance: CLINDAMYCIN HYDROCHLORIDE
     Indication: HIDRADENITIS
     Dosage: 300 MG, 2X/DAY
     Route: 048
     Dates: start: 20171005, end: 20171006
  3. PROPRANOLOL HYDROCHLORIDE. [Concomitant]
     Active Substance: PROPRANOLOL HYDROCHLORIDE
     Dosage: UNK

REACTIONS (1)
  - Candida infection [Not Recovered/Not Resolved]

NARRATIVE: CASE EVENT DATE: 20171007
